FAERS Safety Report 17449080 (Version 2)
Quarter: 2020Q3

REPORT INFORMATION
  Report Type: Report from Study
  Country: US (occurrence: US)
  Receive Date: 20200224
  Receipt Date: 20200810
  Transmission Date: 20201102
  Serious: No
  Sender: FDA-Public Use
  Company Number: NVSC2020US048907

PATIENT
  Age: 9 Year
  Sex: Female

DRUGS (2)
  1. ILARIS [Suspect]
     Active Substance: CANAKINUMAB
     Indication: PYREXIA
     Dosage: 105 MG, EVERY 8 WEEKS
     Route: 058
     Dates: start: 20170712
  2. ILARIS [Suspect]
     Active Substance: CANAKINUMAB
     Dosage: 105 MG, EVERY 6 WEEKS
     Route: 058
     Dates: start: 20170712

REACTIONS (2)
  - Inappropriate schedule of product administration [Recovered/Resolved]
  - Inappropriate schedule of product administration [Recovered/Resolved]

NARRATIVE: CASE EVENT DATE: 20191229
